FAERS Safety Report 8611135-1 (Version None)
Quarter: 2012Q3

REPORT INFORMATION
  Report Type: 
  Country: None (occurrence: None)
  Receive Date: 20120822
  Receipt Date: 20120816
  Transmission Date: 20120928
  Serious: Yes (Hospitalization, Other)
  Sender: FDA-Public Use
  Company Number: US-PFIZER INC-2010144919

PATIENT
  Age: 59 Year
  Sex: Female

DRUGS (1)
  1. FLAGYL [Suspect]
     Indication: HEPATIC ENCEPHALOPATHY
     Dosage: 250 MG, 3X/DAY
     Route: 048

REACTIONS (1)
  - TOXIC ENCEPHALOPATHY [None]
